FAERS Safety Report 5941973-5 (Version None)
Quarter: 2008Q4

REPORT INFORMATION
  Report Type: 
  Country: None (occurrence: None)
  Receive Date: 20081105
  Receipt Date: 20081029
  Transmission Date: 20090506
  Serious: Yes (Death)
  Sender: FDA-Public Use
  Company Number: US-MERCK-0810USA01019

PATIENT
  Age: 40 Year
  Sex: Male

DRUGS (1)
  1. ISENTRESS [Suspect]
     Indication: HIV INFECTION
     Route: 048

REACTIONS (5)
  - BEDRIDDEN [None]
  - DEATH [None]
  - DEPRESSION [None]
  - FEMUR FRACTURE [None]
  - VIRAL LOAD INCREASED [None]
